FAERS Safety Report 14580931 (Version 2)
Quarter: 2018Q2

REPORT INFORMATION
  Report Type: Spontaneous
  Country: CA (occurrence: CA)
  Receive Date: 20180228
  Receipt Date: 20180507
  Transmission Date: 20180711
  Serious: Yes (Other)
  Sender: FDA-Public Use
  Company Number: CA-ORION CORPORATION ORION PHARMA-TREX2017-3266

PATIENT
  Age: 56 Year
  Sex: Male

DRUGS (2)
  1. METHOTREXATE (TRADE NAME UNKNOWN) [Suspect]
     Active Substance: METHOTREXATE
     Indication: RHEUMATOID ARTHRITIS
     Route: 065
     Dates: end: 201802
  2. PLAQUENIL [Concomitant]
     Active Substance: HYDROXYCHLOROQUINE SULFATE
     Indication: RHEUMATOID ARTHRITIS
     Route: 065

REACTIONS (7)
  - Drug effect incomplete [Recovering/Resolving]
  - Musculoskeletal disorder [Recovering/Resolving]
  - Hepatic enzyme increased [Unknown]
  - Drug-induced liver injury [Unknown]
  - Dry mouth [Unknown]
  - Loss of personal independence in daily activities [Recovering/Resolving]
  - Upper respiratory tract infection [Recovered/Resolved]
